FAERS Safety Report 8246441-6 (Version None)
Quarter: 2012Q1

REPORT INFORMATION
  Report Type: 
  Country: None (occurrence: None)
  Receive Date: 20120329
  Receipt Date: 20120329
  Transmission Date: 20120608
  Serious: Yes (Hospitalization)
  Sender: FDA-Public Use
  Company Number: None

PATIENT
  Age: 86 Year
  Sex: Male
  Weight: 76.4 kg

DRUGS (1)
  1. DRONEDARONE HCL [Suspect]
     Indication: ATRIAL FIBRILLATION
     Dosage: 400 MG PO BID
     Route: 048
     Dates: start: 20120120, end: 20120305

REACTIONS (7)
  - RASH PRURITIC [None]
  - DERMATITIS BULLOUS [None]
  - RASH MACULO-PAPULAR [None]
  - OEDEMA PERIPHERAL [None]
  - PEMPHIGOID [None]
  - URTICARIA [None]
  - EOSINOPHILIA [None]
